FAERS Safety Report 11267467 (Version 1)
Quarter: 2015Q3

REPORT INFORMATION
  Report Type: Spontaneous
  Country: US (occurrence: US)
  Receive Date: 20150713
  Receipt Date: 20150713
  Transmission Date: 20151125
  Serious: No
  Sender: FDA-Public Use
  Company Number: US-TAKEDA-2013MPI000394

PATIENT
  Sex: Female
  Weight: 79.37 kg

DRUGS (2)
  1. VELCADE [Suspect]
     Active Substance: BORTEZOMIB
     Indication: PLASMA CELL MYELOMA
     Dosage: UNK UNK, 2/WEEK
     Route: 042
     Dates: start: 201305
  2. VELCADE [Suspect]
     Active Substance: BORTEZOMIB
     Dosage: UNK UNK, 1/WEEK
     Route: 042

REACTIONS (7)
  - Fatigue [Not Recovered/Not Resolved]
  - Back pain [Not Recovered/Not Resolved]
  - Diarrhoea [Not Recovered/Not Resolved]
  - Weight decreased [Not Recovered/Not Resolved]
  - Neuropathy peripheral [Not Recovered/Not Resolved]
  - Nausea [Not Recovered/Not Resolved]
  - Bone pain [Not Recovered/Not Resolved]
